FAERS Safety Report 9963888 (Version 1)
Quarter: 2014Q1

REPORT INFORMATION
  Report Type: Report from Study
  Country: US (occurrence: US)
  Receive Date: 20140305
  Receipt Date: 20140305
  Transmission Date: 20141002
  Serious: No
  Sender: FDA-Public Use
  Company Number: US-ABBVIE-13P-163-1119136-00

PATIENT
  Age: 40 Year
  Sex: Female

DRUGS (4)
  1. HUMIRA [Suspect]
     Indication: COLITIS ULCERATIVE
     Dates: start: 20130417, end: 20130626
  2. CALCIUM + VITAMIN D [Concomitant]
     Indication: VITAMIN SUPPLEMENTATION
  3. APRISO [Concomitant]
     Indication: COLITIS ULCERATIVE
     Dosage: 0.325GM DAILY
  4. PROBIOTIC [Concomitant]
     Indication: GASTRIC DISORDER

REACTIONS (2)
  - Diarrhoea [Not Recovered/Not Resolved]
  - Defaecation urgency [Not Recovered/Not Resolved]
